FAERS Safety Report 8176803-7 (Version None)
Quarter: 2012Q1

REPORT INFORMATION
  Report Type: 
  Country: None (occurrence: None)
  Receive Date: 20120228
  Receipt Date: 20120214
  Transmission Date: 20120608
  Serious: Yes (Hospitalization)
  Sender: FDA-Public Use
  Company Number: 2012P1006063

PATIENT
  Age: 28 Year
  Sex: Female

DRUGS (9)
  1. CYCLIZINE (NO PREF. NAME) [Suspect]
     Indication: GENERAL ANAESTHESIA
     Dosage: ; IV
     Route: 042
  2. MEPERIDINE HYDROCHLORIDE [Suspect]
     Indication: GENERAL ANAESTHESIA
     Dosage: ; IV
     Route: 042
     Dates: start: 20111010, end: 20111010
  3. DEXAMETHASONE [Suspect]
     Indication: GENERAL ANAESTHESIA
     Dosage: ; IV
     Route: 042
  4. FENTANYL [Suspect]
     Indication: GENERAL ANAESTHESIA
     Dosage: ;IV
     Route: 042
  5. SCOPOLAMINE [Suspect]
     Indication: GENERAL ANAESTHESIA
     Dosage: ; IV
     Route: 042
     Dates: start: 20111010, end: 20111010
  6. ATRACURIUM BESYLATE [Suspect]
     Indication: GENERAL ANAESTHESIA
     Dosage: ;  IV
     Route: 042
  7. SUPRANE [Suspect]
     Indication: CHOLELITHIASIS
     Dates: start: 20111011
  8. ONDANSETRON [Suspect]
     Indication: GENERAL ANAESTHESIA
     Dosage: ; IV
  9. REMIFENTANIL (NO PREF. NAME) [Suspect]
     Indication: GENERAL ANAESTHESIA
     Dosage: IV
     Route: 042

REACTIONS (5)
  - POST PROCEDURAL COMPLICATION [None]
  - BLOOD BILIRUBIN INCREASED [None]
  - ABDOMINAL PAIN [None]
  - ALANINE AMINOTRANSFERASE INCREASED [None]
  - REFUSAL OF TREATMENT BY PATIENT [None]
